FAERS Safety Report 18459376 (Version 3)
Quarter: 2021Q2

REPORT INFORMATION
  Report Type: Report from Study
  Country: US (occurrence: US)
  Receive Date: 20201103
  Receipt Date: 20210409
  Transmission Date: 20210717
  Serious: No
  Sender: FDA-Public Use
  Company Number: NVSC2020US295054

PATIENT
  Sex: Female

DRUGS (1)
  1. COSENTYX [Suspect]
     Active Substance: SECUKINUMAB
     Indication: PSORIASIS
     Dosage: 300 MG, QMO
     Route: 058
     Dates: start: 20201008

REACTIONS (8)
  - Pharyngeal swelling [Unknown]
  - Headache [Unknown]
  - Psoriasis [Unknown]
  - Fatigue [Unknown]
  - Urticaria [Unknown]
  - Blister [Unknown]
  - Skin ulcer [Unknown]
  - Seasonal allergy [Unknown]
